FAERS Safety Report 9693547 (Version 1)
Quarter: 2013Q4

REPORT INFORMATION
  Report Type: Spontaneous
  Country: FR (occurrence: FR)
  Receive Date: 20131118
  Receipt Date: 20131118
  Transmission Date: 20140711
  Serious: Yes (Hospitalization)
  Sender: FDA-Public Use
  Company Number: FR-GLAXOSMITHKLINE-B0940574A

PATIENT
  Age: 80 Year
  Sex: Female

DRUGS (4)
  1. CLAMOXYL [Suspect]
     Indication: SINUSITIS
     Route: 048
     Dates: start: 201210, end: 20121029
  2. LAMICTAL [Suspect]
     Indication: PRODUCT USED FOR UNKNOWN INDICATION
     Route: 048
     Dates: start: 20121017, end: 20121029
  3. CRESTOR [Concomitant]
  4. LYSANXIA [Concomitant]

REACTIONS (5)
  - Drug hypersensitivity [Unknown]
  - Erythema [Unknown]
  - Urticaria [Unknown]
  - Rash morbilliform [Unknown]
  - Pruritus [Unknown]
